FAERS Safety Report 6785860-1 (Version None)
Quarter: 2010Q2

REPORT INFORMATION
  Report Type: 
  Country: None (occurrence: None)
  Receive Date: 20100623
  Receipt Date: 20100611
  Transmission Date: 20101027
  Serious: Yes (Other)
  Sender: FDA-Public Use
  Company Number: US-PFIZER INC-2010066362

PATIENT
  Age: 11 Year
  Sex: Female
  Weight: 56.3 kg

DRUGS (1)
  1. SUNITINIB MALATE [Suspect]
     Indication: NEOPLASM
     Dosage: 15 MG/M2, 1X/DAY, DAYS 1-28
     Route: 048
     Dates: start: 20100426

REACTIONS (1)
  - FLUSHING [None]
